FAERS Safety Report 15437291 (Version 1)
Quarter: 2018Q3

REPORT INFORMATION
  Report Type: Spontaneous
  Country: US (occurrence: US)
  Receive Date: 20180927
  Receipt Date: 20180927
  Transmission Date: 20181010
  Serious: No
  Sender: FDA-Public Use
  Company Number: US-AMGEN-USASP2018040793

PATIENT
  Age: 72 Year
  Sex: Female

DRUGS (1)
  1. XGEVA [Suspect]
     Active Substance: DENOSUMAB
     Indication: BREAST CANCER METASTATIC
     Dosage: 120 MG, UNK
     Route: 065
     Dates: start: 20180319

REACTIONS (5)
  - Nausea [Recovered/Resolved]
  - Diarrhoea [Recovered/Resolved]
  - Tonsillar disorder [Unknown]
  - Lymphadenopathy [Unknown]
  - Pain [Not Recovered/Not Resolved]

NARRATIVE: CASE EVENT DATE: 201803
